FAERS Safety Report 7912493-3 (Version None)
Quarter: 2011Q4

REPORT INFORMATION
  Report Type: 
  Country: None (occurrence: None)
  Receive Date: 20111114
  Receipt Date: 20111107
  Transmission Date: 20120403
  Serious: Yes (Other)
  Sender: FDA-Public Use
  Company Number: US-PFIZER INC-2011272365

PATIENT
  Sex: Female
  Weight: 61.678 kg

DRUGS (2)
  1. VYVANSE [Concomitant]
     Dosage: UNK
  2. CHANTIX [Suspect]
     Indication: SMOKING CESSATION THERAPY
     Dosage: 0.5 MG, 1X/DAY
     Route: 048
     Dates: start: 20111013, end: 20111102

REACTIONS (7)
  - HALLUCINATION [None]
  - DRUG INEFFECTIVE [None]
  - TOBACCO USER [None]
  - MALAISE [None]
  - NAUSEA [None]
  - ABNORMAL DREAMS [None]
  - VITREOUS FLOATERS [None]
